FAERS Safety Report 8288326-5 (Version None)
Quarter: 2012Q2

REPORT INFORMATION
  Report Type: 
  Country: None (occurrence: None)
  Receive Date: 20120416
  Receipt Date: 20111214
  Transmission Date: 20120825
  Serious: No
  Sender: FDA-Public Use
  Company Number: US-SANOFI-AVENTIS-2012SA000677

PATIENT
  Age: 42 Year
  Sex: Male
  Weight: 93 kg

DRUGS (3)
  1. CLOMIPHENE CITRATE [Suspect]
     Route: 048
     Dates: start: 20111001, end: 20111209
  2. ALL OTHER THERAPEUTIC PRODUCTS [Concomitant]
     Dates: start: 20100101
  3. CLOMIPHENE CITRATE [Suspect]
     Route: 065
     Dates: start: 20090101

REACTIONS (7)
  - PHOTOPHOBIA [None]
  - TINNITUS [None]
  - VISUAL IMPAIRMENT [None]
  - EAR DISCOMFORT [None]
  - HEADACHE [None]
  - HEAD DISCOMFORT [None]
  - DIZZINESS [None]
